FAERS Safety Report 5607398-7 (Version None)
Quarter: 2008Q1

REPORT INFORMATION
  Report Type: 
  Country: None (occurrence: None)
  Receive Date: 20080130
  Receipt Date: 20071008
  Transmission Date: 20080703
  Serious: No
  Sender: FDA-Public Use
  Company Number: US-KINGPHARMUSA00001-K200701306

PATIENT

DRUGS (7)
  1. PROCANBID [Suspect]
     Indication: CARDIAC DISORDER
     Dosage: 1000 MG, BID
     Route: 048
  2. CARDIZEM [Concomitant]
     Dosage: 240 MG, QD
     Route: 048
  3. ASPIRIN [Concomitant]
     Dosage: 81 MG, QD
     Route: 048
  4. AMLODIPINE W/BENAZEPRIL [Concomitant]
     Dosage: 5/20, QD
  5. HYDROCHLOROTHIAZIDE [Concomitant]
     Dosage: 12.5 MG, QD
     Route: 048
  6. VITAMIN B12                        /00056201/ [Concomitant]
     Dosage: 1 TABLET
     Route: 048
  7. FLOMAX /00889901/ [Concomitant]
     Indication: PROSTATIC DISORDER
     Dosage: .4 MG, QD
     Route: 048

REACTIONS (3)
  - DRUG ADMINISTRATION ERROR [None]
  - MEDICATION RESIDUE [None]
  - NO ADVERSE EVENT [None]
